FAERS Safety Report 20429221 (Version 3)
Quarter: 2022Q2

REPORT INFORMATION
  Report Type: Spontaneous
  Country: JP (occurrence: JP)
  Receive Date: 20220204
  Receipt Date: 20220621
  Transmission Date: 20220721
  Serious: No
  Sender: FDA-Public Use
  Company Number: JP-GLAXOSMITHKLINE-JP2022JPN017323

PATIENT

DRUGS (6)
  1. SOTROVIMAB [Suspect]
     Active Substance: SOTROVIMAB
     Indication: COVID-19
     Dosage: 500 MG, QD
     Route: 041
     Dates: start: 20220128, end: 20220128
  2. HEPARIN CALCIUM [Suspect]
     Active Substance: HEPARIN CALCIUM
     Indication: Thrombosis prophylaxis
     Dosage: 10000 UNITS/DAY
     Route: 058
     Dates: start: 20220128, end: 20220205
  3. CALONAL [Suspect]
     Active Substance: ACETAMINOPHEN
     Indication: Antipyresis
     Dosage: 1200 MG/DAY
     Route: 048
     Dates: start: 20220127, end: 20220131
  4. CALONAL [Suspect]
     Active Substance: ACETAMINOPHEN
     Indication: Analgesic therapy
  5. HERBALS [Suspect]
     Active Substance: HERBALS
     Indication: Nasopharyngitis
     Dosage: 7.5 G/DAY
     Route: 048
     Dates: start: 20220127, end: 20220131
  6. DEXTROMETHORPHAN HYDROBROMIDE [Suspect]
     Active Substance: DEXTROMETHORPHAN HYDROBROMIDE
     Indication: Cough
     Dosage: 35 MG/DAY
     Route: 048
     Dates: start: 20220127, end: 20220130

REACTIONS (2)
  - Caesarean section [Unknown]
  - Exposure during pregnancy [Unknown]

NARRATIVE: CASE EVENT DATE: 20220130
